FAERS Safety Report 10069975 (Version 1)
Quarter: 2014Q2

REPORT INFORMATION
  Report Type: Spontaneous
  Country: AR (occurrence: None)
  Receive Date: 20140408
  Receipt Date: 20140408
  Transmission Date: 20141212
  Serious: Yes (Hospitalization, Other)
  Sender: FDA-Public Use
  Company Number: 2014HINLIT0312

PATIENT
  Age: 47 Year
  Sex: Male

DRUGS (5)
  1. LAMIVUDINE (LAMIVUDINE) UNKNOWN [Suspect]
     Indication: HIV INFECTION
  2. TENOFOVIR (TENOFOVIR) UNKNOWN [Suspect]
     Indication: HIV INFECTION
  3. ATAZANAVIR/RITONAVIR (ATAZANAVIR, RITONAVIR) UNKNOWN [Suspect]
     Indication: HIV INFECTION
  4. MIGRAL (ERGOTAMINE, DIPYRONE, CAFFEINE) TABLET [Suspect]
     Indication: PRODUCT USED FOR UNKNOWN INDICATION
  5. MIGRAL (ERGOTAMINE, DIPYRONE, CAFFEINE) TABLET [Suspect]
     Indication: SELF-MEDICATION

REACTIONS (3)
  - Ergot poisoning [None]
  - Drug interaction [None]
  - Self-medication [None]
